FAERS Safety Report 4489547-X (Version None)
Quarter: 2004Q4

REPORT INFORMATION
  Report Type: 
  Country: None (occurrence: None)
  Receive Date: 20041025
  Receipt Date: 20041018
  Transmission Date: 20050328
  Serious: Yes (Hospitalization)
  Sender: FDA-Public Use
  Company Number: 2004-08-0583

PATIENT
  Age: 52 Year
  Sex: Male

DRUGS (5)
  1. PEG-INTRON [Suspect]
     Indication: HEPATITIS C
     Dosage: 120 MCG QW SUBCUTANEOUS
     Route: 058
     Dates: start: 20040202
  2. RIBAVIRIN [Suspect]
     Indication: HEPATITIS C
     Dosage: 1000 MG QD ORAL
     Route: 048
     Dates: start: 20040202
  3. LOTREL [Concomitant]
  4. MOTRIN [Concomitant]
  5. MULTI-VITAMINS [Concomitant]

REACTIONS (1)
  - BRONCHITIS [None]
